FAERS Safety Report 12694721 (Version 4)
Quarter: 2016Q4

REPORT INFORMATION
  Report Type: Report from Study
  Country: CA (occurrence: CA)
  Receive Date: 20160829
  Receipt Date: 20161102
  Transmission Date: 20170207
  Serious: Yes (Hospitalization)
  Sender: FDA-Public Use
  Company Number: CA-JNJFOC-20160511942

PATIENT
  Age: 55 Year
  Sex: Female
  Weight: 66.4 kg

DRUGS (25)
  1. LORAZEPAM. [Concomitant]
     Active Substance: LORAZEPAM
     Indication: DEPRESSION
     Route: 065
     Dates: start: 2015
  2. CICLESONIDE [Concomitant]
     Active Substance: CICLESONIDE
     Route: 065
  3. METOTREXATE [Concomitant]
     Active Substance: METHOTREXATE SODIUM
     Indication: LIVER FUNCTION TEST INCREASED
     Route: 048
  4. MEDROXYPROGESTERONE [Concomitant]
     Active Substance: MEDROXYPROGESTERONE
     Route: 065
  5. PREDNISONE. [Concomitant]
     Active Substance: PREDNISONE
     Route: 065
     Dates: start: 20020613, end: 2004
  6. PREMARIN [Concomitant]
     Active Substance: ESTROGENS, CONJUGATED
     Indication: MENOPAUSE
     Route: 065
     Dates: start: 2011
  7. SIMPONI [Suspect]
     Active Substance: GOLIMUMAB
     Indication: RHEUMATOID ARTHRITIS
     Route: 042
     Dates: start: 20150505
  8. FOLIC ACID. [Concomitant]
     Active Substance: FOLIC ACID
     Route: 048
     Dates: start: 20120406, end: 20120531
  9. METOTREXATE [Concomitant]
     Active Substance: METHOTREXATE SODIUM
     Indication: LIVER FUNCTION TEST INCREASED
     Route: 048
     Dates: start: 20140827
  10. PARACETAMOL [Concomitant]
     Active Substance: ACETAMINOPHEN
     Route: 065
  11. METOTREXATE [Concomitant]
     Active Substance: METHOTREXATE SODIUM
     Indication: LIVER FUNCTION TEST INCREASED
     Route: 048
     Dates: start: 20131018, end: 20131108
  12. FOLIC ACID. [Concomitant]
     Active Substance: FOLIC ACID
     Route: 048
     Dates: start: 20120823
  13. AMITRIPTYLINE [Concomitant]
     Active Substance: AMITRIPTYLINE
     Indication: DEPRESSION
     Route: 065
     Dates: start: 20120531
  14. TYLENOL WITH CODEINE [Concomitant]
     Active Substance: ACETAMINOPHEN\CODEINE PHOSPHATE
     Route: 065
  15. CEFALEXIN [Concomitant]
     Active Substance: CEPHALEXIN
     Indication: CELLULITIS
     Route: 065
     Dates: start: 20160501, end: 20160505
  16. METOTREXATE [Concomitant]
     Active Substance: METHOTREXATE SODIUM
     Indication: LIVER FUNCTION TEST INCREASED
     Route: 048
     Dates: start: 20060406, end: 20120531
  17. METOTREXATE [Concomitant]
     Active Substance: METHOTREXATE SODIUM
     Indication: LIVER FUNCTION TEST INCREASED
     Route: 048
     Dates: start: 20120823, end: 20131017
  18. PREGABALIN. [Concomitant]
     Active Substance: PREGABALIN
     Indication: FIBROMYALGIA
     Route: 065
     Dates: start: 2015
  19. OXYCODONE [Concomitant]
     Active Substance: OXYCODONE
     Indication: FIBROMYALGIA
     Route: 065
     Dates: start: 200804, end: 20100907
  20. ESCITALOPRAM [Concomitant]
     Active Substance: ESCITALOPRAM OXALATE
     Indication: DEPRESSION
     Route: 065
     Dates: start: 1995
  21. ESTROGEN [Concomitant]
     Active Substance: ESTRONE\SUS SCROFA OVARY
     Route: 065
  22. PREDNISONE. [Concomitant]
     Active Substance: PREDNISONE
     Route: 065
     Dates: start: 20070302
  23. TRIAMCINOLONE [Concomitant]
     Active Substance: TRIAMCINOLONE
     Route: 065
     Dates: start: 20140501
  24. METOTREXATE [Concomitant]
     Active Substance: METHOTREXATE SODIUM
     Indication: LIVER FUNCTION TEST INCREASED
     Route: 048
     Dates: start: 20131108, end: 20140827
  25. FOLIC ACID. [Concomitant]
     Active Substance: FOLIC ACID
     Route: 048

REACTIONS (9)
  - Concussion [Recovered/Resolved]
  - Fall [Recovered/Resolved]
  - Pneumothorax [Recovered/Resolved]
  - Rib fracture [Recovered/Resolved]
  - Cellulitis [Recovered/Resolved]
  - Asthenia [Recovered/Resolved]
  - Foaming at mouth [Recovered/Resolved]
  - Traumatic haematoma [Recovered/Resolved]
  - Skull fracture [Recovered/Resolved]

NARRATIVE: CASE EVENT DATE: 20160501
